FAERS Safety Report 6647921-7 (Version None)
Quarter: 2010Q1

REPORT INFORMATION
  Report Type: 
  Country: None (occurrence: None)
  Receive Date: 20100324
  Receipt Date: 20100309
  Transmission Date: 20100710
  Serious: Yes (Disabling, Other)
  Sender: FDA-Public Use
  Company Number: US-TYCO HEALTHCARE/MALLINCKRODT-T200800548

PATIENT

DRUGS (17)
  1. OPTIMARK [Suspect]
     Indication: NUCLEAR MAGNETIC RESONANCE IMAGING
     Route: 042
     Dates: start: 20060727, end: 20060727
  2. OPTIMARK [Suspect]
     Route: 042
     Dates: start: 20060731, end: 20060731
  3. MAGNEVIST [Suspect]
     Indication: NUCLEAR MAGNETIC RESONANCE IMAGING
     Dates: start: 20050527, end: 20050527
  4. HUMULIN N [Concomitant]
     Indication: DIABETES MELLITUS
     Dosage: 12 UNITS THREE TIMES A DAY
     Dates: start: 19900101
  5. ENBREL [Concomitant]
     Indication: ARTHRITIS
     Dosage: 50 MG, SHOT ONE TIME WEEKLY
     Dates: start: 20051001
  6. BENICAR [Concomitant]
     Indication: BLOOD PRESSURE
     Dosage: 40 MG, QD
  7. SIMVASTATIN [Concomitant]
     Indication: BLOOD CHOLESTEROL
     Dosage: 80 MG, QD
  8. FOLIC ACID [Concomitant]
     Indication: ANAEMIA
     Dosage: 1 MG, BID
  9. BUMETANIDE [Concomitant]
     Indication: DIURETIC THERAPY
     Dosage: 2 MG, QD
  10. ACETAMINOPHEN AND HYDROCODONE BITARTRATE [Concomitant]
     Dosage: 7.5/500, AS NEEDED
     Dates: start: 20060101
  11. CLONIDINE [Concomitant]
     Indication: HYPERTENSION
     Dosage: .3 MG, ONE PATCH WEEKLY
  12. NORVASC [Concomitant]
     Indication: HYPERTENSION
     Dosage: 10 MG, QD
  13. TRAVATAN [Concomitant]
     Indication: GLAUCOMA
     Dosage: .004 %, ONE DROP IN EACH EYE AT BEDTIME
  14. ARANESP [Concomitant]
     Indication: ANAEMIA
     Dosage: 100 MG, ONE SHOT MONTHLY
  15. ALLOPURINOL [Concomitant]
     Dosage: 100 MG, BID
  16. ACETYLSALICYLIC ACID [Concomitant]
     Dosage: 325 MG, QD
  17. COLCHICINE [Concomitant]
     Dosage: 0.6 MG, PRN

REACTIONS (17)
  - ANXIETY [None]
  - BRADYCARDIA [None]
  - CARDIAC FAILURE CONGESTIVE [None]
  - ECZEMA NUMMULAR [None]
  - HYPOTHYROIDISM [None]
  - LEFT VENTRICULAR HYPERTROPHY [None]
  - LICHENOID KERATOSIS [None]
  - LYMPHOEDEMA [None]
  - MELANOSIS COLI [None]
  - MITRAL VALVE INCOMPETENCE [None]
  - NEPHROGENIC SYSTEMIC FIBROSIS [None]
  - OFF LABEL USE [None]
  - RHEUMATOID ARTHRITIS [None]
  - SKIN ULCER [None]
  - TRICUSPID VALVE INCOMPETENCE [None]
  - VENOUS INSUFFICIENCY [None]
  - XEROSIS [None]
